FAERS Safety Report 6956182-0 (Version None)
Quarter: 2010Q3

REPORT INFORMATION
  Report Type: 
  Country: None (occurrence: None)
  Receive Date: 20100830
  Receipt Date: 20100820
  Transmission Date: 20110219
  Serious: Yes (Hospitalization)
  Sender: FDA-Public Use
  Company Number: PHHY2010DE41433

PATIENT
  Age: 16 Year
  Sex: Female
  Weight: 72 kg

DRUGS (3)
  1. RITALIN LA [Suspect]
     Indication: ATTENTION DEFICIT/HYPERACTIVITY DISORDER
     Dosage: 40 MG, QD
     Route: 048
     Dates: start: 20100517, end: 20100610
  2. RITALIN LA [Suspect]
     Dosage: 80 MG, QD
     Route: 048
     Dates: end: 20100610
  3. SYMBICORT [Concomitant]
     Dosage: 160/4.5 2X 2 PUFFS DAILY

REACTIONS (13)
  - DECREASED APPETITE [None]
  - DIZZINESS [None]
  - ELECTROCARDIOGRAM QT PROLONGED [None]
  - EPILEPSY [None]
  - FATIGUE [None]
  - HEADACHE [None]
  - HEART RATE INCREASED [None]
  - HYPERHIDROSIS [None]
  - NAUSEA [None]
  - OVERDOSE [None]
  - PALLOR [None]
  - PALPITATIONS [None]
  - SINUS TACHYCARDIA [None]
